FAERS Safety Report 4876547-0 (Version None)
Quarter: 2005Q4

REPORT INFORMATION
  Report Type: 
  Country: None (occurrence: None)
  Receive Date: 20051206
  Receipt Date: 20051003
  Transmission Date: 20060501
  Serious: No
  Sender: FDA-Public Use
  Company Number: USA0510109805

PATIENT
  Sex: Male

DRUGS (3)
  1. CYMBALTA [Suspect]
     Indication: DEPRESSION
     Dosage: 60 MG DAY
     Dates: start: 20041001, end: 20050901
  2. CYMBALTA [Suspect]
     Indication: PAIN
     Dosage: 60 MG DAY
     Dates: start: 20041001, end: 20050901
  3. ATIVAN [Concomitant]

REACTIONS (2)
  - CAFFEINE CONSUMPTION [None]
  - DRUG INEFFECTIVE [None]
